FAERS Safety Report 5733328-3 (Version None)
Quarter: 2008Q2

REPORT INFORMATION
  Report Type: 
  Country: None (occurrence: None)
  Receive Date: 20080509
  Receipt Date: 20080505
  Transmission Date: 20081010
  Serious: Yes (Other)
  Sender: FDA-Public Use
  Company Number: PHEH2008US04321

PATIENT
  Sex: Male

DRUGS (1)
  1. LOTREL [Suspect]
     Dosage: ^20 MG^ AML, 40 MG BEN, UNK

REACTIONS (2)
  - AGGRESSION [None]
  - HALLUCINATION [None]
